FAERS Safety Report 9576546 (Version 2)
Quarter: 2015Q3

REPORT INFORMATION
  Report Type: Spontaneous
  Country: US (occurrence: US)
  Receive Date: 20131001
  Receipt Date: 20150724
  Transmission Date: 20151125
  Serious: No
  Sender: FDA-Public Use
  Company Number: US-AMGEN-USASP2013003935

PATIENT
  Age: 55 Year
  Sex: Female
  Weight: 68.27 kg

DRUGS (5)
  1. GABAPENTIN. [Suspect]
     Active Substance: GABAPENTIN
     Indication: PAIN
     Dosage: UNK
     Route: 065
     Dates: start: 201504
  2. MVI                                /01825701/ [Concomitant]
     Dosage: UNK
  3. ENBREL [Suspect]
     Active Substance: ETANERCEPT
     Indication: RHEUMATOID ARTHRITIS
     Dosage: 50 MG, QWK
     Route: 058
  4. MELOXICAM. [Concomitant]
     Active Substance: MELOXICAM
     Dosage: UNK
  5. VOLTAREN [Concomitant]
     Active Substance: DICLOFENAC SODIUM
     Dosage: 50 MG, UNK EC

REACTIONS (17)
  - Injection site discomfort [Unknown]
  - Vomiting [Unknown]
  - Joint swelling [Unknown]
  - Pain [Unknown]
  - Diarrhoea [Unknown]
  - Visual impairment [Unknown]
  - Swelling [Unknown]
  - Musculoskeletal stiffness [Unknown]
  - Injection site pain [Unknown]
  - Injection site swelling [Unknown]
  - Inflammation [Unknown]
  - Poor peripheral circulation [Unknown]
  - Mobility decreased [Unknown]
  - Injection site warmth [Unknown]
  - Arthralgia [Unknown]
  - Peripheral swelling [Unknown]
  - Injection site reaction [Unknown]

NARRATIVE: CASE EVENT DATE: 20121101
